FAERS Safety Report 10374418 (Version 6)
Quarter: 2019Q2

REPORT INFORMATION
  Report Type: Report from Study
  Country: US (occurrence: US)
  Receive Date: 20140811
  Receipt Date: 20190523
  Transmission Date: 20190711
  Serious: Yes (Other)
  Sender: FDA-Public Use
  Company Number: US-AMGEN-USASP2014059966

PATIENT
  Age: 61 Year
  Sex: Female
  Weight: 52.15 kg

DRUGS (3)
  1. ENBREL [Suspect]
     Active Substance: ETANERCEPT
     Dosage: 50 MILLIGRAM
     Route: 065
     Dates: end: 2015
  2. HUMIRA [Concomitant]
     Active Substance: ADALIMUMAB
     Indication: PSORIASIS
     Dosage: 40 MILLIGRAM, Q2WK
     Dates: start: 20190503
  3. ENBREL [Suspect]
     Active Substance: ETANERCEPT
     Indication: PSORIASIS
     Dosage: 50 MILLIGRAM
     Route: 065
     Dates: start: 20051215

REACTIONS (9)
  - Hepatitis C virus test positive [Unknown]
  - Injection site pain [Recovered/Resolved]
  - Psoriasis [Unknown]
  - Onychomycosis [Recovered/Resolved]
  - Surgery [Unknown]
  - Visual impairment [Unknown]
  - Oral surgery [Unknown]
  - Varicose vein [Recovered/Resolved]
  - Immunosuppression [Unknown]

NARRATIVE: CASE EVENT DATE: 2014
